FAERS Safety Report 24273235 (Version 1)
Quarter: 2024Q3

REPORT INFORMATION
  Report Type: Spontaneous
  Country: JP (occurrence: JP)
  Receive Date: 20240902
  Receipt Date: 20240902
  Transmission Date: 20241017
  Serious: Yes (Hospitalization)
  Sender: TAKEDA
  Company Number: JP-TEVA-VS-3237046

PATIENT
  Age: 71 Year
  Sex: Male
  Weight: 69 kg

DRUGS (15)
  1. ASPIRIN\LANSOPRAZOLE [Suspect]
     Active Substance: ASPIRIN\LANSOPRAZOLE
     Indication: Coronary artery bypass
     Dosage: 1 DOSAGE FORM, QD (100MG ASPIRIN + 15MG LANSOPRAZOLE, COMBINATION TABLETS)
     Route: 048
     Dates: start: 20240522, end: 20240616
  2. ROSUVASTATIN [Concomitant]
     Active Substance: ROSUVASTATIN\ROSUVASTATIN CALCIUM
     Indication: Product used for unknown indication
     Dosage: UNK, DOSAGE IS UNKNOWN, OD TABLETS?DSEP?
     Route: 065
  3. CALONAL [Concomitant]
     Active Substance: ACETAMINOPHEN
     Indication: Product used for unknown indication
     Dosage: UNK, DOSAGE IS UNKNOWN
     Route: 065
  4. VILDAGLIPTIN [Concomitant]
     Active Substance: VILDAGLIPTIN
     Indication: Product used for unknown indication
     Dosage: UNK, DOSAGE IS UNKNOWN, TABLETS 50MG
     Route: 065
  5. WARFARIN [Concomitant]
     Active Substance: WARFARIN
     Indication: Product used for unknown indication
     Dosage: UNK, DOSAGE IS UNKNOWN, TABLETS 1MG
     Route: 065
  6. WARFARIN [Concomitant]
     Active Substance: WARFARIN
     Dosage: UNK, DOSAGE IS UNKNOWN, TABLETS 0.5MG
     Route: 065
  7. BISOPROLOL FUMARATE [Concomitant]
     Active Substance: BISOPROLOL FUMARATE
     Indication: Product used for unknown indication
     Dosage: UNK, DOSAGE IS UNKNOWN, TABLETS 0.625MG^TOWA^
     Route: 065
  8. CELECOXIB [Concomitant]
     Active Substance: CELECOXIB
     Indication: Product used for unknown indication
     Dosage: UNK, DOSAGE IS UNKNOWN, TABLETS 100MG VTRS
     Route: 065
  9. REPAGLINIDE [Concomitant]
     Active Substance: REPAGLINIDE
     Indication: Product used for unknown indication
     Dosage: UNK, DOSAGE IS UNKNOWN,  TABLETS 0.5MG?SAWAI?
     Route: 065
  10. SPIRONOLACTONE [Concomitant]
     Active Substance: SPIRONOLACTONE
     Indication: Product used for unknown indication
     Dosage: UNK, DOSAGE IS UNKNOWN, TABLETS 25MG^TOWA^
     Route: 065
  11. FUROSEMIDE [Concomitant]
     Active Substance: FUROSEMIDE
     Indication: Product used for unknown indication
     Dosage: UNK, DOSAGE IS UNKNOWN,  TABLETS~ 20MG?NIG?
     Route: 065
  12. EZETIMIBE [Concomitant]
     Active Substance: EZETIMIBE
     Indication: Product used for unknown indication
     Dosage: UNK, DOSAGE IS UNKNOWN,  TABLETS10MG?DSEP?
     Route: 065
  13. BROTIZOLAM [Concomitant]
     Active Substance: BROTIZOLAM
     Indication: Product used for unknown indication
     Dosage: UNK, DOSAGE IS UNKNOWN,  TABLETS 0.25MG [SAWAI]
     Route: 065
  14. NICORANDIL [Concomitant]
     Active Substance: NICORANDIL
     Indication: Product used for unknown indication
     Dosage: UNK, DOSAGE IS UNKNOWN,  TABLETS 5MG?SAWAI?
     Route: 065
  15. REBAMIPIDE [Concomitant]
     Active Substance: REBAMIPIDE
     Indication: Product used for unknown indication
     Dosage: UNK, DOSAGE IS UNKNOWN, TABLETS 100MG OTSUKA
     Route: 065

REACTIONS (3)
  - Sputum increased [Recovered/Resolved]
  - Dyspnoea [Recovered/Resolved]
  - Hypersensitivity [Recovered/Resolved]

NARRATIVE: CASE EVENT DATE: 20240610
